FAERS Safety Report 25006704 (Version 1)
Quarter: 2025Q1

REPORT INFORMATION
  Report Type: Report from Study
  Country: BE (occurrence: BE)
  Receive Date: 20250225
  Receipt Date: 20250225
  Transmission Date: 20250408
  Serious: Yes (Other)
  Sender: ABBVIE
  Company Number: BE-JNJFOC-20170211366

PATIENT
  Age: 79 Year
  Sex: Female

DRUGS (2)
  1. IBRUTINIB [Suspect]
     Active Substance: IBRUTINIB
     Indication: Mantle cell lymphoma
     Route: 048
     Dates: start: 20150123, end: 20170111
  2. IBRUTINIB [Suspect]
     Active Substance: IBRUTINIB
     Indication: Mantle cell lymphoma
     Route: 048

REACTIONS (16)
  - Fatigue [Recovered/Resolved]
  - Pancytopenia [Recovered/Resolved]
  - Cardiac failure [Not Recovered/Not Resolved]
  - Thrombocytopenia [Recovered/Resolved]
  - Dyspnoea [Recovered/Resolved]
  - Skin fissures [Recovered/Resolved]
  - Haematoma [Recovered/Resolved]
  - Decreased appetite [Recovered/Resolved]
  - Urinary tract infection [Recovered/Resolved]
  - Sacral pain [Recovered/Resolved]
  - Petechiae [Not Recovered/Not Resolved]
  - Diarrhoea [Recovered/Resolved]
  - Weight decreased [Not Recovered/Not Resolved]
  - Fatigue [Not Recovered/Not Resolved]
  - Decreased appetite [Not Recovered/Not Resolved]
  - Skin fissures [Recovered/Resolved]

NARRATIVE: CASE EVENT DATE: 20150219
